FAERS Safety Report 6576826-5 (Version None)
Quarter: 2010Q1

REPORT INFORMATION
  Report Type: 
  Country: None (occurrence: None)
  Receive Date: 20100210
  Receipt Date: 20100202
  Transmission Date: 20100710
  Serious: Yes (Death)
  Sender: FDA-Public Use
  Company Number: US-ELI_LILLY_AND_COMPANY-US201002000760

PATIENT
  Age: 62 Year
  Sex: Male

DRUGS (2)
  1. SYMBYAX [Suspect]
     Indication: BIPOLAR DISORDER
     Dosage: 1 D/F, UNKNOWN
     Route: 065
     Dates: start: 20090501, end: 20090601
  2. SYMBYAX [Suspect]
     Dosage: 1 D/F, UNKNOWN
     Route: 065
     Dates: start: 20090601

REACTIONS (1)
  - SUBARACHNOID HAEMORRHAGE [None]
